FAERS Safety Report 22889946 (Version 5)
Quarter: 2023Q4

REPORT INFORMATION
  Report Type: Report from Study
  Country: KR (occurrence: KR)
  Receive Date: 20230831
  Receipt Date: 20231110
  Transmission Date: 20240110
  Serious: Yes (Hospitalization)
  Sender: FDA-Public Use
  Company Number: KR-PFIZER INC-202300284659

PATIENT
  Age: 55 Year
  Sex: Male
  Weight: 72.3 kg

DRUGS (2)
  1. ELRANATAMAB [Suspect]
     Active Substance: ELRANATAMAB
     Indication: Plasma cell myeloma
     Dosage: 76.0 MG, EVERY 2 WEEKS
     Route: 058
     Dates: start: 20230808, end: 20230808
  2. DARATUMUMAB [Suspect]
     Active Substance: DARATUMUMAB
     Indication: Plasma cell myeloma
     Dosage: 1800.0 MG, EVERY 4 WEEKS
     Route: 058
     Dates: start: 20230808, end: 20230808

REACTIONS (2)
  - Cellulitis orbital [Recovered/Resolved]
  - Anaemia [Recovered/Resolved]

NARRATIVE: CASE EVENT DATE: 20230817
